FAERS Safety Report 6064437-X (Version None)
Quarter: 2009Q1

REPORT INFORMATION
  Report Type: 
  Country: None (occurrence: None)
  Receive Date: 20090130
  Receipt Date: 20090122
  Transmission Date: 20090719
  Serious: Yes (Life-Threatening)
  Sender: FDA-Public Use
  Company Number: 113566

PATIENT
  Age: 4 Year
  Sex: Male
  Weight: 19.0511 kg

DRUGS (2)
  1. TRIACTING DAYTIME COLD + COUGH SYRUP [Suspect]
     Indication: COUGH
     Dosage: 5 ML / ONCE / ORAL
     Route: 048
     Dates: start: 20090122, end: 20090122
  2. TRIACTING DAYTIME COLD + COUGH SYRUP [Suspect]
     Indication: RHINORRHOEA
     Dosage: 5 ML / ONCE / ORAL
     Route: 048
     Dates: start: 20090122, end: 20090122

REACTIONS (3)
  - ANAPHYLACTIC SHOCK [None]
  - LOSS OF CONSCIOUSNESS [None]
  - PRURITUS [None]
